FAERS Safety Report 20489141 (Version 1)
Quarter: 2022Q1

REPORT INFORMATION
  Report Type: Spontaneous
  Country: US (occurrence: None)
  Receive Date: 20220217
  Receipt Date: 20220217
  Transmission Date: 20220423
  Serious: Yes (Life-Threatening, Hospitalization)
  Sender: FDA-Public Use
  Company Number: None

PATIENT
  Age: 76 Year
  Sex: Male
  Weight: 56 kg

DRUGS (1)
  1. PREDNISONE [Suspect]
     Active Substance: PREDNISONE
     Indication: Chronic obstructive pulmonary disease
     Dosage: FREQUENCY : DAILY;?
     Route: 048
     Dates: start: 20211124, end: 20211226

REACTIONS (6)
  - Agitation [None]
  - Confusional state [None]
  - Depression [None]
  - Insomnia [None]
  - Speech disorder [None]
  - Suicidal ideation [None]

NARRATIVE: CASE EVENT DATE: 20211216
